FAERS Safety Report 6734227-0 (Version None)
Quarter: 2010Q2

REPORT INFORMATION
  Report Type: 
  Country: None (occurrence: None)
  Receive Date: 20100520
  Receipt Date: 20100507
  Transmission Date: 20101027
  Serious: Yes (Other)
  Sender: FDA-Public Use
  Company Number: PHHY2010US29846

PATIENT
  Age: 4 Year
  Sex: Female

DRUGS (9)
  1. CYCLOSPORINE [Suspect]
     Indication: CORD BLOOD TRANSPLANT THERAPY
  2. CYCLOSPORINE [Suspect]
     Indication: PROPHYLAXIS AGAINST GRAFT VERSUS HOST DISEASE
  3. CYCLOSPORINE [Suspect]
     Indication: LIVER TRANSPLANT
  4. MYCOPHENOLATE MOFETIL [Suspect]
     Indication: CORD BLOOD TRANSPLANT THERAPY
  5. MYCOPHENOLATE MOFETIL [Suspect]
     Indication: LIVER TRANSPLANT
  6. MYCOPHENOLATE MOFETIL [Suspect]
     Indication: PROPHYLAXIS AGAINST GRAFT VERSUS HOST DISEASE
  7. BUSULFEX [Concomitant]
     Indication: CORD BLOOD TRANSPLANT THERAPY
     Dosage: 0.8 MG/KG, Q6H
  8. CYCLOPHOSPHAMIDE [Concomitant]
     Indication: CORD BLOOD TRANSPLANT THERAPY
     Dosage: 50 MG/KG, QD
  9. ANTITHYMOCYTE IMMUNOGLOBULIN [Concomitant]
     Indication: CORD BLOOD TRANSPLANT THERAPY
     Dosage: 15 MG/KG, QD

REACTIONS (3)
  - ACUTE GRAFT VERSUS HOST DISEASE [None]
  - BACTERAEMIA [None]
  - CHOLANGITIS [None]
